FAERS Safety Report 5976023-8 (Version None)
Quarter: 2008Q4

REPORT INFORMATION
  Report Type: 
  Country: None (occurrence: None)
  Receive Date: 20081202
  Receipt Date: 20081121
  Transmission Date: 20090506
  Serious: Yes (Hospitalization)
  Sender: FDA-Public Use
  Company Number: CH-ROCHE-599219

PATIENT
  Age: 93 Year
  Sex: Male

DRUGS (5)
  1. TOREM [Suspect]
     Indication: DRUG USE FOR UNKNOWN INDICATION
     Route: 048
     Dates: end: 20071219
  2. DIGOXIN [Suspect]
     Indication: DRUG USE FOR UNKNOWN INDICATION
     Route: 048
     Dates: end: 20071219
  3. ISOPTIN [Concomitant]
     Route: 048
  4. SERTRALINE [Concomitant]
     Route: 048
  5. LEXOTANIL [Concomitant]
     Route: 048

REACTIONS (4)
  - ASTHENIA [None]
  - DRUG TOXICITY [None]
  - NAUSEA [None]
  - RENAL FAILURE CHRONIC [None]
